FAERS Safety Report 25987436 (Version 1)
Quarter: 2025Q4

REPORT INFORMATION
  Report Type: Spontaneous
  Country: EU (occurrence: EU)
  Receive Date: 20251103
  Receipt Date: 20251103
  Transmission Date: 20260118
  Serious: No
  Sender: ALKEM
  Company Number: EU-ALKEM LABORATORIES LIMITED-PT-ALKEM-2025-02459

PATIENT
  Age: 12 Year
  Sex: Female

DRUGS (2)
  1. IBUPROFEN [Suspect]
     Active Substance: IBUPROFEN
     Indication: Product used for unknown indication
     Dosage: 100 MILLIGRAM (NEARLY 6 MILLIGRAM PER KILOGRAM) (VIA PERCUTANEOUS ENDOSCOPIC GASTROSTOMY)
     Route: 065
  2. IBUPROFEN [Suspect]
     Active Substance: IBUPROFEN
     Dosage: 150 MILLIGRAM (NEARLY 8 MILLIGRAM PER KILOGRAM)
     Route: 065

REACTIONS (2)
  - Food allergy [Unknown]
  - Drug hypersensitivity [Recovering/Resolving]
